FAERS Safety Report 8124327-5 (Version None)
Quarter: 2012Q1

REPORT INFORMATION
  Report Type: 
  Country: None (occurrence: None)
  Receive Date: 20120209
  Receipt Date: 20120130
  Transmission Date: 20120608
  Serious: Yes (Hospitalization)
  Sender: FDA-Public Use
  Company Number: US-JNJFOC-20111107974

PATIENT
  Sex: Female
  Weight: 38.1 kg

DRUGS (10)
  1. METHOTREXATE [Concomitant]
  2. NEXIUM [Concomitant]
  3. ZOLOFT [Concomitant]
  4. REMICADE [Suspect]
     Indication: INFLAMMATORY BOWEL DISEASE
     Route: 042
     Dates: start: 20091001, end: 20110126
  5. ERGOCALCIFEROL [Concomitant]
  6. STRATTERA [Concomitant]
  7. MIRALAX [Concomitant]
  8. ACETAMINOPHEN [Concomitant]
  9. FERROUS SULFATE TAB [Concomitant]
  10. PREDNISONE TAB [Concomitant]

REACTIONS (1)
  - CROHN'S DISEASE [None]
